FAERS Safety Report 15456277 (Version 2)
Quarter: 2018Q4

REPORT INFORMATION
  Report Type: Spontaneous
  Country: JP (occurrence: JP)
  Receive Date: 20181002
  Receipt Date: 20181029
  Transmission Date: 20190204
  Serious: Yes (Death, Life-Threatening, Other)
  Sender: FDA-Public Use
  Company Number: JP-009507513-1809JPN002437J

PATIENT
  Age: 72 Year
  Sex: Male
  Weight: 38 kg

DRUGS (2)
  1. NEXIUM [Concomitant]
     Active Substance: ESOMEPRAZOLE MAGNESIUM
     Indication: GASTRIC ULCER
     Dosage: 20 MILLIGRAM, QD
     Route: 048
     Dates: start: 20170722, end: 20170828
  2. KEYTRUDA [Suspect]
     Active Substance: PEMBROLIZUMAB
     Indication: NON-SMALL CELL LUNG CANCER
     Dosage: 200 MG, UNK
     Route: 041
     Dates: start: 20170721, end: 20170721

REACTIONS (9)
  - Oral mucosa erosion [Unknown]
  - Rash [Not Recovered/Not Resolved]
  - Malignant neoplasm progression [Fatal]
  - Hypokalaemia [Unknown]
  - Renal disorder [Not Recovered/Not Resolved]
  - Decreased appetite [Unknown]
  - Liver disorder [Unknown]
  - Skin erosion [Unknown]
  - Condition aggravated [Fatal]

NARRATIVE: CASE EVENT DATE: 20170723
